FAERS Safety Report 17811847 (Version 1)
Quarter: 2020Q2

REPORT INFORMATION
  Report Type: Spontaneous
  Country: US (occurrence: US)
  Receive Date: 20200521
  Receipt Date: 20200521
  Transmission Date: 20200714
  Serious: No
  Sender: FDA-Public Use
  Company Number: US-SA-2020SA127656

PATIENT
  Age: 66 Year
  Sex: Female

DRUGS (1)
  1. NASACORT ALLERGY 24HR [Suspect]
     Active Substance: TRIAMCINOLONE ACETONIDE
     Indication: NASAL CONGESTION
     Dosage: 2 SPRAY/EACH NOSTRIL, QD

REACTIONS (5)
  - Drug ineffective [Unknown]
  - Nasal congestion [Unknown]
  - Feeling abnormal [Unknown]
  - Sinusitis [Unknown]
  - Pruritus [Unknown]
